FAERS Safety Report 5158636-9 (Version None)
Quarter: 2006Q4

REPORT INFORMATION
  Report Type: 
  Country: None (occurrence: None)
  Receive Date: 20061128
  Receipt Date: 20061115
  Transmission Date: 20070319
  Serious: Yes (Other)
  Sender: FDA-Public Use
  Company Number: US-ELI_LILLY_AND_COMPANY-US200611003375

PATIENT
  Age: 40 Year
  Sex: Female
  Weight: 104.31 kg

DRUGS (1)
  1. HUMALOG [Suspect]
     Dosage: UNK, UNKNOWN

REACTIONS (2)
  - FEAR [None]
  - FOREIGN BODY TRAUMA [None]
